FAERS Safety Report 9325965 (Version 1)
Quarter: 2013Q2

REPORT INFORMATION
  Report Type: Spontaneous
  Country: US (occurrence: None)
  Receive Date: 20130603
  Receipt Date: 20130603
  Transmission Date: 20140414
  Serious: No
  Sender: FDA-Public Use
  Company Number: None

PATIENT
  Age: 68 Year
  Sex: Female
  Weight: 70.76 kg

DRUGS (2)
  1. OXALIPLATIN [Suspect]
     Indication: COLON CANCER
     Dosage: 4/4; 4/18; 5/2;
     Route: 040
  2. OXALIPLATIN [Suspect]
     Dosage: 5/16; 5/30

REACTIONS (4)
  - Hypoaesthesia [None]
  - Muscular weakness [None]
  - Feeling abnormal [None]
  - Muscle disorder [None]
